FAERS Safety Report 15297350 (Version 1)
Quarter: 2018Q4

REPORT INFORMATION
  Report Type: Spontaneous
  Country: HR (occurrence: HR)
  Receive Date: 20180820
  Receipt Date: 20180820
  Transmission Date: 20190204
  Serious: Yes (Hospitalization)
  Sender: FDA-Public Use
  Company Number: HR-TEVA-2018-HR-943900

PATIENT
  Age: 66 Year
  Sex: Male
  Weight: 65 kg

DRUGS (4)
  1. RISSET TABLETE 1 MG [Suspect]
     Active Substance: RISPERIDONE
     Indication: SCHIZOID PERSONALITY DISORDER
     Dosage: 1 MILLIGRAM DAILY; 1X1
     Route: 048
     Dates: start: 20180110, end: 20180121
  2. SANVAL [Concomitant]
     Active Substance: ZOLPIDEM TARTRATE
     Indication: SLEEP DISORDER
     Dosage: 5 MILLIGRAM DAILY; 5 MG; 1
     Route: 048
     Dates: start: 20171017
  3. OKSAZEPAM BELUPO [Concomitant]
     Indication: PSYCHOMOTOR HYPERACTIVITY
     Dosage: 15 MILLIGRAM DAILY;  1X1
     Route: 048
     Dates: start: 20171017
  4. EBIXA [Suspect]
     Active Substance: MEMANTINE HYDROCHLORIDE
     Indication: DEMENTIA
     Dosage: 10 MILLIGRAM DAILY;  1X1
     Route: 048
     Dates: start: 20160104, end: 20180121

REACTIONS (2)
  - Epilepsy [Recovered/Resolved]
  - Hallucination [Recovered/Resolved]

NARRATIVE: CASE EVENT DATE: 20180110
